FAERS Safety Report 19088879 (Version 2)
Quarter: 2021Q4

REPORT INFORMATION
  Report Type: Spontaneous
  Country: GB (occurrence: GB)
  Receive Date: 20210403
  Receipt Date: 20211119
  Transmission Date: 20220303
  Serious: Yes (Other)
  Sender: FDA-Public Use
  Company Number: GB-MHRA-TPP22866703C6974293YC1616665661104

PATIENT
  Age: 56 Year
  Sex: Male

DRUGS (1)
  1. AMOXICILLIN\CLAVULANATE POTASSIUM [Suspect]
     Active Substance: AMOXICILLIN\CLAVULANATE POTASSIUM
     Indication: Ill-defined disorder
     Dosage: UNK
     Route: 065
     Dates: start: 20210325

REACTIONS (1)
  - Swelling [Recovered/Resolved]

NARRATIVE: CASE EVENT DATE: 20210325
